FAERS Safety Report 9464061 (Version 3)
Quarter: 2014Q1

REPORT INFORMATION
  Report Type: Report from Study
  Country: CZ (occurrence: CZ)
  Receive Date: 20130819
  Receipt Date: 20140326
  Transmission Date: 20141002
  Serious: Yes (Other)
  Sender: FDA-Public Use
  Company Number: PHHY2013CZ089021

PATIENT
  Age: 24 Year
  Sex: Male

DRUGS (4)
  1. GILENYA [Suspect]
     Indication: MULTIPLE SCLEROSIS
     Dosage: 0.5 MG, QD
     Route: 048
     Dates: start: 20130314, end: 20130605
  2. GILENYA [Suspect]
     Dosage: 0.5 MG, QD
     Route: 048
     Dates: start: 20130702, end: 20130827
  3. GILENYA [Suspect]
     Dosage: 0.5 MG, QD
     Route: 048
     Dates: end: 20140113
  4. CHOLECALCIFEROL [Concomitant]
     Indication: INFLAMMATION
     Dosage: 500 IU, QD (4 GTT DAILY)
     Route: 048
     Dates: start: 20000901

REACTIONS (4)
  - Liver disorder [Not Recovered/Not Resolved]
  - Liver function test abnormal [Unknown]
  - Hepatic enzyme increased [Recovering/Resolving]
  - Lymphocyte count decreased [Unknown]
